FAERS Safety Report 5822886-6 (Version None)
Quarter: 2008Q3

REPORT INFORMATION
  Report Type: 
  Country: None (occurrence: None)
  Receive Date: 20080724
  Receipt Date: 20080724
  Transmission Date: 20090109
  Serious: Yes (Other)
  Sender: FDA-Public Use
  Company Number: None

PATIENT
  Age: 65 Year
  Sex: Female
  Weight: 63.5036 kg

DRUGS (1)
  1. CRESTOR [Suspect]
     Indication: HIGH DENSITY LIPOPROTEIN INCREASED
     Dosage: 10 MG. 3 X WK ORAL
     Route: 048
     Dates: start: 20070101, end: 20080101

REACTIONS (4)
  - ARTHRALGIA [None]
  - ASTHENIA [None]
  - MUSCULAR WEAKNESS [None]
  - PAIN [None]
